FAERS Safety Report 4416592-2 (Version None)
Quarter: 2004Q3

REPORT INFORMATION
  Report Type: 
  Country: None (occurrence: None)
  Receive Date: 20040802
  Receipt Date: 20040115
  Transmission Date: 20050211
  Serious: Yes (Other)
  Sender: FDA-Public Use
  Company Number: GB-JNJFOC-20040102692

PATIENT
  Age: 53 Year
  Sex: Female
  Weight: 79.1 kg

DRUGS (4)
  1. REMICADE [Suspect]
     Indication: RHEUMATOID ARTHRITIS
     Dosage: 3 MG/KG, INTRAVENOUS
     Route: 042
     Dates: start: 20031229, end: 20031229
  2. METHOTREXTE (METHOTREXATE) [Concomitant]
  3. FOLIC ACID [Concomitant]
  4. STEROIDS (CORTICOSTEROID NOS) [Concomitant]

REACTIONS (5)
  - BLOOD PRESSURE DECREASED [None]
  - CHEST DISCOMFORT [None]
  - CHILLS [None]
  - CYANOSIS [None]
  - FLUSHING [None]
